FAERS Safety Report 6148616-9 (Version None)
Quarter: 2009Q2

REPORT INFORMATION
  Report Type: 
  Country: None (occurrence: None)
  Receive Date: 20090408
  Receipt Date: 20090327
  Transmission Date: 20091009
  Serious: Yes (Hospitalization)
  Sender: FDA-Public Use
  Company Number: DE-GILEAD-E2B_00000284

PATIENT
  Sex: Female

DRUGS (5)
  1. AMBRISENTAN [Suspect]
     Indication: PULMONARY ARTERIAL HYPERTENSION
     Dosage: 5MG PER DAY
     Route: 048
     Dates: start: 20081204, end: 20090213
  2. BISOPMOLOL [Concomitant]
  3. HEPARIN [Concomitant]
     Dates: start: 20090206, end: 20090206
  4. HEPARIN [Concomitant]
     Dates: start: 20090205, end: 20090205
  5. HYDROCHLOROTHIAZIDE [Concomitant]
     Dates: start: 20090205

REACTIONS (1)
  - RIGHT VENTRICULAR FAILURE [None]
